FAERS Safety Report 5108958-2 (Version None)
Quarter: 2006Q3

REPORT INFORMATION
  Report Type: 
  Country: None (occurrence: None)
  Receive Date: 20060920
  Receipt Date: 20060906
  Transmission Date: 20061208
  Serious: Yes (Hospitalization, Disabling)
  Sender: FDA-Public Use
  Company Number: AUWYE894312SEP06

PATIENT
  Age: 24 Year
  Sex: Male

DRUGS (3)
  1. ENBREL [Suspect]
     Indication: JUVENILE ARTHRITIS
     Route: 058
  2. PREDNISONE [Concomitant]
  3. ZOMETA [Concomitant]

REACTIONS (3)
  - ABASIA [None]
  - ANKLE FRACTURE [None]
  - FRACTURE DELAYED UNION [None]
